FAERS Safety Report 8669594 (Version 2)
Quarter: 2013Q4

REPORT INFORMATION
  Report Type: Spontaneous
  Country: US (occurrence: US)
  Receive Date: 20120718
  Receipt Date: 20131101
  Transmission Date: 20140711
  Serious: No
  Sender: FDA-Public Use
  Company Number: US-009507513-1207USA001604

PATIENT
  Sex: 0

DRUGS (1)
  1. ZIOPTAN [Suspect]
     Route: 031

REACTIONS (1)
  - Ocular hyperaemia [Unknown]
